FAERS Safety Report 16595793 (Version 4)
Quarter: 2019Q4

REPORT INFORMATION
  Report Type: Spontaneous
  Country: BR (occurrence: BR)
  Receive Date: 20190719
  Receipt Date: 20191004
  Transmission Date: 20200122
  Serious: No
  Sender: FDA-Public Use
  Company Number: BR-SA-2019SA176852

PATIENT
  Age: 35 Year
  Sex: Female
  Weight: 85 kg

DRUGS (4)
  1. LANTUS [Suspect]
     Active Substance: INSULIN GLARGINE
     Indication: DIABETES MELLITUS
     Dosage: 30 IU, QD
     Route: 058
  2. NOVORAPID [Concomitant]
     Active Substance: INSULIN ASPART
     Dosage: UNKNOWN
     Route: 065
  3. APIDRA [Suspect]
     Active Substance: INSULIN GLULISINE
     Indication: DIABETES MELLITUS
     Dosage: EIGHT TIMES A DAY
     Route: 065
  4. APIDRA [Suspect]
     Active Substance: INSULIN GLULISINE
     Dosage: 30 IU, QD
     Route: 058

REACTIONS (6)
  - Inappropriate schedule of product administration [Unknown]
  - Wrong product administered [Unknown]
  - Blood glucose decreased [Recovered/Resolved]
  - Multiple use of single-use product [Unknown]
  - Exposure during pregnancy [Unknown]
  - Intentional device misuse [Unknown]
